FAERS Safety Report 9015952 (Version 1)
Quarter: 2013Q1

REPORT INFORMATION
  Report Type: Spontaneous
  Country: US (occurrence: US)
  Receive Date: 20130116
  Receipt Date: 20130116
  Transmission Date: 20140127
  Serious: Yes (Other)
  Sender: FDA-Public Use
  Company Number: US-ELI_LILLY_AND_COMPANY-US201301004289

PATIENT
  Age: 54 Year
  Sex: Male

DRUGS (2)
  1. ALIMTA [Suspect]
     Indication: NASOPHARYNGEAL CANCER
     Dosage: 500 MG/M2, EVERY 3 WEEKS
     Dates: start: 20120820, end: 20121203
  2. ZOMETA [Concomitant]
     Dosage: 4 MG, UNK

REACTIONS (2)
  - Malignant neoplasm progression [Unknown]
  - Off label use [Unknown]
